FAERS Safety Report 20836345 (Version 3)
Quarter: 2022Q4

REPORT INFORMATION
  Report Type: Spontaneous
  Country: US (occurrence: US)
  Receive Date: 20220517
  Receipt Date: 20221125
  Transmission Date: 20230113
  Serious: Yes (Other)
  Sender: FDA-Public Use
  Company Number: US-NOVARTISTESTPH-NVSC2022US110322

PATIENT
  Sex: Male

DRUGS (1)
  1. TISAGENLECLEUCEL [Suspect]
     Active Substance: TISAGENLECLEUCEL
     Indication: Acute lymphocytic leukaemia recurrent
     Dosage: UNK, ONCE/SINGLE (STANDARD DOSE)
     Route: 042

REACTIONS (3)
  - B-cell aplasia [Unknown]
  - SARS-CoV-2 test positive [Unknown]
  - Out of specification test results [Unknown]
